FAERS Safety Report 6532278-2 (Version None)
Quarter: 2010Q1

REPORT INFORMATION
  Report Type: 
  Country: None (occurrence: None)
  Receive Date: 20100108
  Receipt Date: 20100105
  Transmission Date: 20100710
  Serious: Yes (Hospitalization)
  Sender: FDA-Public Use
  Company Number: US-ROCHE-675642

PATIENT
  Sex: Male
  Weight: 96.2 kg

DRUGS (17)
  1. BEVACIZUMAB [Suspect]
     Dosage: DOSE FORM: INFUSION, ROUTE, DOSE FORM, DOSE AND FREQUENCY TAKEN FROM PROTOCOL.
     Route: 042
     Dates: start: 20040910, end: 20091208
  2. ERLOTINIB [Suspect]
     Dosage: ROUTE, DOSE AND FREQUENCY TAKEN FROM PROTOCOL.  FREQUENCY: DAILY
     Route: 048
     Dates: start: 20040910, end: 20091208
  3. GLEEVEC [Suspect]
     Route: 048
  4. RYTHMOL [Concomitant]
  5. LOVASTATIN [Concomitant]
     Dosage: FREQUENCY: QD
  6. PREVACID [Concomitant]
     Dosage: FREQUENCY: QD
  7. VALIUM [Concomitant]
     Indication: VERTIGO
     Dosage: FREQUENCY: PRN
  8. SOMA [Concomitant]
     Dosage: DOSE: 350MG 6H, FREQUENCY: PRN
  9. ASPIRIN [Concomitant]
     Dosage: STOPPED ON AN UNKNOWN DATE 4 MONTHS AGO.
     Dates: start: 20040720
  10. METAMUCIL [Concomitant]
     Dates: start: 20040720
  11. HUMULIN 70/30 [Concomitant]
     Dates: start: 20040720
  12. HUMULIN R [Concomitant]
     Dates: start: 20040720
  13. ZOCOR [Concomitant]
  14. ENOXAPARIN SODIUM [Concomitant]
     Dates: start: 20060704
  15. LEVAQUIN [Concomitant]
     Dates: start: 20060704
  16. ALLOPURINOL [Concomitant]
     Dates: start: 20060704
  17. ZELNORM [Concomitant]
     Dates: start: 20060704

REACTIONS (3)
  - CEREBROVASCULAR ACCIDENT [None]
  - GAIT DISTURBANCE [None]
  - ISCHAEMIC STROKE [None]
